FAERS Safety Report 5838783-6 (Version None)
Quarter: 2008Q3

REPORT INFORMATION
  Report Type: 
  Country: None (occurrence: None)
  Receive Date: 20080731
  Receipt Date: 20080513
  Transmission Date: 20090109
  Serious: Yes (Hospitalization)
  Sender: FDA-Public Use
  Company Number: CERZ-1000220

PATIENT
  Age: 71 Year
  Sex: Male
  Weight: 104 kg

DRUGS (1)
  1. CEREZYME [Suspect]
     Indication: GAUCHER'S DISEASE
     Dosage: 28.85 U/KG, Q2W, INTRAVENOUS
     Route: 042
     Dates: start: 19990721

REACTIONS (2)
  - PNEUMONIA [None]
  - PROSTATIC DISORDER [None]
